FAERS Safety Report 5944987-4 (Version None)
Quarter: 2008Q4

REPORT INFORMATION
  Report Type: 
  Country: None (occurrence: None)
  Receive Date: 20081107
  Receipt Date: 20081028
  Transmission Date: 20090506
  Serious: Yes (Hospitalization, Other)
  Sender: FDA-Public Use
  Company Number: US-MERCK-0806USA08788

PATIENT
  Age: 61 Year
  Sex: Female
  Weight: 54 kg

DRUGS (20)
  1. FOSAMAX [Suspect]
     Indication: OSTEOPOROSIS
     Route: 048
     Dates: start: 20080421, end: 20080519
  2. FOSAMAX [Suspect]
     Route: 048
     Dates: start: 20080421, end: 20080519
  3. CALCIUM (UNSPECIFIED) [Concomitant]
     Route: 065
  4. BACTRIM [Concomitant]
     Route: 065
  5. LORATADINE [Concomitant]
     Route: 065
  6. FLUNISOLIDE [Concomitant]
     Route: 065
  7. ALBUTEROL [Concomitant]
     Route: 048
  8. TYLENOL W/ CODEINE [Concomitant]
     Route: 065
  9. GLUCOSAMINE [Concomitant]
     Route: 065
  10. ZOCOR [Concomitant]
     Route: 048
  11. PYRIDIUM [Concomitant]
     Route: 065
  12. ADDERALL TABLETS [Suspect]
     Indication: ATTENTION DEFICIT/HYPERACTIVITY DISORDER
     Route: 065
     Dates: start: 20080101
  13. ADVAIR DISKUS 100/50 [Concomitant]
     Route: 065
  14. VITAMINS (UNSPECIFIED) [Concomitant]
     Route: 065
  15. SINGULAIR [Concomitant]
     Route: 048
  16. FLONASE [Concomitant]
     Route: 065
  17. ZYRTEC [Concomitant]
     Route: 065
  18. ADVIL [Concomitant]
     Route: 065
  19. XANAX [Concomitant]
     Route: 065
  20. DIFLUCAN [Concomitant]
     Route: 065
     Dates: start: 20080401

REACTIONS (6)
  - ADVERSE EVENT [None]
  - ATRIAL FIBRILLATION [None]
  - BLOOD PRESSURE INCREASED [None]
  - HEART RATE INCREASED [None]
  - MUSCULAR WEAKNESS [None]
  - MYALGIA [None]
